FAERS Safety Report 9271307 (Version 2)
Quarter: 2013Q2

REPORT INFORMATION
  Report Type: Spontaneous
  Country: JP (occurrence: JP)
  Receive Date: 20130506
  Receipt Date: 20130523
  Transmission Date: 20140414
  Serious: Yes (Other)
  Sender: FDA-Public Use
  Company Number: JP-ELI_LILLY_AND_COMPANY-JP201304008601

PATIENT
  Age: 85 Year
  Sex: Female

DRUGS (2)
  1. ZYPREXA [Suspect]
     Indication: BIPOLAR DISORDER
     Dosage: 2.5 MG, QD
     Route: 048
  2. LITHIUM [Concomitant]
     Dosage: UNK
     Route: 048

REACTIONS (1)
  - Blood glucose abnormal [Not Recovered/Not Resolved]
